FAERS Safety Report 8685945 (Version 2)
Quarter: 2012Q4

REPORT INFORMATION
  Report Type: 
  Country: US (occurrence: US)
  Receive Date: 20120726
  Receipt Date: 20121017
  Transmission Date: 20130627
  Serious: No
  Sender: FDA-Public Use
  Company Number: US-ASTRAZENECA-2011SE54838

PATIENT
  Age: 64 Year
  Sex: Female

DRUGS (2)
  1. SEROQUEL [Suspect]
     Indication: BIPOLAR DISORDER
     Route: 048
  2. SEROQUEL [Suspect]
     Indication: BIPOLAR DISORDER
     Route: 048

REACTIONS (10)
  - Cataract [Unknown]
  - Pain in extremity [Unknown]
  - Tendonitis [Unknown]
  - Sinus disorder [Unknown]
  - Anxiety [Unknown]
  - Sleep disorder [Unknown]
  - Blood glucose increased [Unknown]
  - Dry mouth [Unknown]
  - Weight increased [Unknown]
  - Blood cholesterol increased [Unknown]
